FAERS Safety Report 6302972-7 (Version None)
Quarter: 2009Q3

REPORT INFORMATION
  Report Type: 
  Country: None (occurrence: None)
  Receive Date: 20090810
  Receipt Date: 20090805
  Transmission Date: 20100115
  Serious: Yes (Hospitalization)
  Sender: FDA-Public Use
  Company Number: BE-AVENTIS-200917828GDDC

PATIENT
  Age: 59 Year
  Sex: Male

DRUGS (1)
  1. PAROXETINE HCL [Suspect]
     Dosage: DOSE: UNK

REACTIONS (5)
  - ANXIETY [None]
  - FEAR [None]
  - NAUSEA [None]
  - SOMNOLENCE [None]
  - TREMOR [None]
